FAERS Safety Report 25117270 (Version 1)
Quarter: 2025Q1

REPORT INFORMATION
  Report Type: Spontaneous
  Country: US (occurrence: US)
  Receive Date: 20250325
  Receipt Date: 20250325
  Transmission Date: 20250409
  Serious: Yes (Hospitalization, Other)
  Sender: HIKMA
  Company Number: US-HIKMA PHARMACEUTICALS USA INC.-US-H14001-25-02554

PATIENT
  Age: 60 Year
  Sex: Male
  Weight: 73.7 kg

DRUGS (5)
  1. FENTANYL [Suspect]
     Active Substance: FENTANYL
     Indication: Surgery
     Route: 065
     Dates: start: 20250120
  2. MELOXICAM [Suspect]
     Active Substance: MELOXICAM
     Indication: Procedural pain
     Dosage: 2 DOSAGE FORM, Q6H
     Route: 048
     Dates: start: 20250120, end: 20250122
  3. OXYCODONE [Suspect]
     Active Substance: OXYCODONE
     Indication: Product used for unknown indication
     Route: 065
  4. TRAMADOL [Suspect]
     Active Substance: TRAMADOL
     Indication: Procedural pain
     Dosage: 2 DOSAGE FORM, Q6H
     Route: 048
     Dates: start: 20250120, end: 20250122
  5. ZOFRAN [Suspect]
     Active Substance: ONDANSETRON HYDROCHLORIDE
     Indication: Nausea
     Route: 042
     Dates: start: 20250121

REACTIONS (8)
  - Ileus [Recovered/Resolved]
  - Alanine aminotransferase increased [Unknown]
  - Aspartate aminotransferase increased [Unknown]
  - Blood bilirubin increased [Unknown]
  - Hypertension [Unknown]
  - Prothrombin time prolonged [Unknown]
  - Nitrite urine present [Unknown]
  - White blood cell count increased [Recovered/Resolved]

NARRATIVE: CASE EVENT DATE: 20250120
